FAERS Safety Report 7999604-9 (Version None)
Quarter: 2011Q4

REPORT INFORMATION
  Report Type: 
  Country: None (occurrence: None)
  Receive Date: 20111221
  Receipt Date: 20111213
  Transmission Date: 20120403
  Serious: Yes (Life-Threatening, Hospitalization)
  Sender: FDA-Public Use
  Company Number: JP-MERCK-1111USA00116

PATIENT
  Age: 82 Year
  Sex: Female
  Weight: 45 kg

DRUGS (5)
  1. JANUVIA [Suspect]
     Indication: DIABETES MELLITUS
     Dosage: MORNING
     Route: 048
     Dates: start: 20110305, end: 20110309
  2. PREDNISOLONE [Concomitant]
     Indication: POLYMYALGIA RHEUMATICA
     Dosage: DOSAGE IS UNCERTAIN DURING A DAY
     Route: 048
  3. NOVORAPID [Concomitant]
     Dosage: DOSAGE IS UNCERTAIN DURING A DAY
     Route: 058
     Dates: end: 20110304
  4. GLIMEPIRIDE [Concomitant]
     Dosage: DOSAGE IS UNCERTAIN DURING A DAY
     Route: 048
  5. ACARBOSE [Concomitant]
     Dosage: DOSAGE IS UNCERTAIN DURING A DAY
     Route: 048

REACTIONS (2)
  - HYPERGLYCAEMIA [None]
  - DIABETES WITH HYPEROSMOLARITY [None]
